FAERS Safety Report 9349472 (Version 2)
Quarter: 2014Q1

REPORT INFORMATION
  Report Type: Spontaneous
  Country: US (occurrence: US)
  Receive Date: 20130614
  Receipt Date: 20140213
  Transmission Date: 20141002
  Serious: Yes (Hospitalization)
  Sender: FDA-Public Use
  Company Number: US-B.I. PHARMACEUTICALS,INC./RIDGEFIELD-2013-BI-16562BP

PATIENT
  Sex: Male
  Weight: 79.38 kg

DRUGS (12)
  1. PRADAXA [Suspect]
     Indication: CEREBROVASCULAR ACCIDENT PROPHYLAXIS
     Dates: start: 20110113, end: 20110316
  2. PRADAXA [Suspect]
     Indication: THROMBOSIS PROPHYLAXIS
  3. PRADAXA [Suspect]
     Indication: ATRIAL FIBRILLATION
  4. ASPIRIN [Concomitant]
     Dosage: 325 MG
     Route: 048
  5. VITAMIN B COMPLEX [Concomitant]
     Route: 048
  6. ASCORBIC ACID [Concomitant]
     Dosage: 250 MG
     Route: 048
  7. VITAMIN D [Concomitant]
     Route: 048
  8. AZOPT [Concomitant]
     Route: 031
  9. ACCUPRIL [Concomitant]
     Dosage: 40 MG
     Route: 048
  10. AMIODARONE [Concomitant]
     Dosage: 200 MG
     Route: 048
  11. LANTUS INSULIN [Concomitant]
     Dosage: 150 U
     Route: 058
  12. HUMALOG LISPRO [Concomitant]
     Route: 058

REACTIONS (2)
  - Gastrointestinal haemorrhage [Unknown]
  - Haemorrhagic anaemia [Unknown]
